FAERS Safety Report 12338544 (Version 2)
Quarter: 2016Q2

REPORT INFORMATION
  Report Type: Report from Study
  Country: US (occurrence: US)
  Receive Date: 20160505
  Receipt Date: 20160628
  Transmission Date: 20160815
  Serious: Yes (Other)
  Sender: FDA-Public Use
  Company Number: US-BAYER-2016-060394

PATIENT
  Age: 67 Year
  Sex: Male

DRUGS (5)
  1. STIVARGA [Suspect]
     Active Substance: REGORAFENIB
     Indication: COLORECTAL CANCER
     Dosage: 160 MG, QD
     Route: 048
     Dates: start: 20160229, end: 20160307
  2. STIVARGA [Suspect]
     Active Substance: REGORAFENIB
     Indication: COLORECTAL CANCER
     Dosage: 80 MG, QD
     Route: 048
     Dates: start: 20160312, end: 20160318
  3. STIVARGA [Suspect]
     Active Substance: REGORAFENIB
     Indication: COLORECTAL CANCER
     Dosage: 80 MG, QD
     Route: 048
     Dates: start: 20160329, end: 20160330
  4. STIVARGA [Suspect]
     Active Substance: REGORAFENIB
     Indication: COLORECTAL CANCER
     Dosage: 120 MG, QD
     Route: 048
     Dates: start: 20160318, end: 20160324
  5. STIVARGA [Suspect]
     Active Substance: REGORAFENIB
     Indication: COLORECTAL CANCER
     Dosage: 80 MG, QD X 5 DAYS, ALTERNATING 5 DAYS ON AND OFF
     Route: 048
     Dates: start: 20160404, end: 20160613

REACTIONS (18)
  - Therapeutic response unexpected [None]
  - Gait disturbance [None]
  - Blood pressure increased [Recovering/Resolving]
  - Adverse drug reaction [None]
  - Product use issue [None]
  - Pain in extremity [None]
  - Epistaxis [None]
  - Fatigue [None]
  - Peripheral swelling [None]
  - Palmar-plantar erythrodysaesthesia syndrome [None]
  - Drug ineffective [None]
  - Oral pain [None]
  - Erythema [None]
  - Hyperkeratosis [None]
  - Erythema [None]
  - Rash macular [Recovering/Resolving]
  - Pain in extremity [Recovering/Resolving]
  - Skin exfoliation [None]

NARRATIVE: CASE EVENT DATE: 2016
